FAERS Safety Report 8898468 (Version 1)
Quarter: 2012Q4

REPORT INFORMATION
  Report Type: 
  Country: US (occurrence: US)
  Receive Date: 20121109
  Receipt Date: 20121109
  Transmission Date: 20130627
  Serious: Yes (Other)
  Sender: FDA-Public Use
  Company Number: US-SANOFI-AVENTIS-2012SA080719

PATIENT
  Sex: Male

DRUGS (1)
  1. FERRLECIT [Suspect]
     Route: 041
     Dates: end: 20121030

REACTIONS (3)
  - Skin necrosis [Unknown]
  - Injection site extravasation [Unknown]
  - Skin infection [Unknown]
